FAERS Safety Report 5514171-7 (Version None)
Quarter: 2007Q4

REPORT INFORMATION
  Report Type: 
  Country: None (occurrence: None)
  Receive Date: 20071113
  Receipt Date: 20071102
  Transmission Date: 20080405
  Serious: Yes (Hospitalization)
  Sender: FDA-Public Use
  Company Number: CH-ROCHE-529677

PATIENT
  Age: 82 Year
  Sex: Male

DRUGS (8)
  1. TOREM [Suspect]
     Indication: DRUG USE FOR UNKNOWN INDICATION
     Route: 048
  2. GLUCOPHAGE [Suspect]
     Indication: DRUG USE FOR UNKNOWN INDICATION
     Dosage: FORM REPORTED AS FILM-COATED TABLETS.
     Route: 048
     Dates: end: 20070401
  3. GLUCOPHAGE [Suspect]
     Route: 048
  4. AMARYL [Suspect]
     Indication: DRUG USE FOR UNKNOWN INDICATION
     Route: 048
     Dates: end: 20070401
  5. AMARYL [Suspect]
     Route: 048
  6. RENITEN [Suspect]
     Indication: DRUG USE FOR UNKNOWN INDICATION
     Route: 048
     Dates: end: 20070401
  7. PANTOPRAZOLE SODIUM [Concomitant]
     Route: 048
  8. SOTALOL HCL [Concomitant]
     Route: 048

REACTIONS (3)
  - HYPOGLYCAEMIA [None]
  - METABOLIC ACIDOSIS [None]
  - RENAL FAILURE ACUTE [None]
